FAERS Safety Report 5839704-2 (Version None)
Quarter: 2008Q3

REPORT INFORMATION
  Report Type: 
  Country: None (occurrence: None)
  Receive Date: 20080811
  Receipt Date: 20080731
  Transmission Date: 20090109
  Serious: Yes (Hospitalization, Other)
  Sender: FDA-Public Use
  Company Number: CA-JNJFOC-20080404976

PATIENT
  Sex: Female
  Weight: 61 kg

DRUGS (3)
  1. REMICADE [Suspect]
     Indication: CROHN'S DISEASE
     Route: 042
  2. SOLU-CORTEF [Concomitant]
     Indication: PREMEDICATION
     Route: 042
  3. BENADRYL [Concomitant]
     Indication: PREMEDICATION
     Route: 042

REACTIONS (8)
  - BODY TEMPERATURE INCREASED [None]
  - CHILLS [None]
  - COUGH [None]
  - DYSPNOEA [None]
  - FLUSHING [None]
  - PALPITATIONS [None]
  - PHARYNGEAL OEDEMA [None]
  - THROAT IRRITATION [None]
